FAERS Safety Report 25960254 (Version 1)
Quarter: 2025Q4

REPORT INFORMATION
  Report Type: Report from Study
  Country: EU (occurrence: EU)
  Receive Date: 20251026
  Receipt Date: 20251026
  Transmission Date: 20260119
  Serious: Yes (Death)
  Sender: ABBVIE
  Company Number: EU-ABBVIE-6447961

PATIENT
  Age: 82 Year
  Sex: Male

DRUGS (4)
  1. CARBIDOPA\LEVODOPA [Suspect]
     Active Substance: CARBIDOPA\LEVODOPA
     Indication: Parkinson^s disease
     Dosage: MD:7.0 ML, CRT: 2.6 ML/H, ED: 2.0 ML, CRN: 1.5ML/H, 16 HOURS OF THERAPY
     Route: 050
     Dates: start: 20250818
  2. CARBIDOPA\LEVODOPA [Suspect]
     Active Substance: CARBIDOPA\LEVODOPA
  3. LEVODOPA [Suspect]
     Active Substance: LEVODOPA
     Indication: Product used for unknown indication
     Dosage: 200 MG OF LEVODOPA AT 10 PM
     Route: 050
  4. LEVODOPA [Suspect]
     Active Substance: LEVODOPA
     Indication: Product used for unknown indication
     Dosage: 100 MG OF LEVODOPA AT 3 A.M.
     Route: 050

REACTIONS (7)
  - Death [Fatal]
  - Restlessness [Not Recovered/Not Resolved]
  - Hallucination, visual [Not Recovered/Not Resolved]
  - Incorrect route of product administration [Unknown]
  - Hypokinesia [Not Recovered/Not Resolved]
  - Fall [Unknown]
  - Sleep disorder [Not Recovered/Not Resolved]

NARRATIVE: CASE EVENT DATE: 20250101
